FAERS Safety Report 9168506 (Version 1)
Quarter: 2013Q1

REPORT INFORMATION
  Report Type: Spontaneous
  Country: US (occurrence: None)
  Receive Date: 20130314
  Receipt Date: 20130314
  Transmission Date: 20140127
  Serious: No
  Sender: FDA-Public Use
  Company Number: None

PATIENT
  Age: 70 Year
  Sex: Male

DRUGS (1)
  1. QSYMIA [Suspect]
     Indication: WEIGHT DECREASED
     Dosage: 3.75/23  DIVIDE QD, PO UP TO 14 DAYS ENDING ON 3/10/13
     Route: 048
     Dates: end: 20130310

REACTIONS (3)
  - Flatulence [None]
  - Discomfort [None]
  - Skin odour abnormal [None]
